FAERS Safety Report 6953070-0 (Version None)
Quarter: 2010Q3

REPORT INFORMATION
  Report Type: 
  Country: None (occurrence: None)
  Receive Date: 20100829
  Receipt Date: 20100525
  Transmission Date: 20110219
  Serious: No
  Sender: FDA-Public Use
  Company Number: US-ABBOTT-10P-163-0647861-00

PATIENT
  Sex: Male
  Weight: 86.26 kg

DRUGS (4)
  1. NIASPAN [Suspect]
     Indication: BLOOD CHOLESTEROL INCREASED
     Route: 048
     Dates: start: 20080101, end: 20090101
  2. NIASPAN [Suspect]
     Route: 048
     Dates: start: 20090101, end: 20100523
  3. ASTELIN [Concomitant]
     Indication: SEASONAL ALLERGY
     Route: 045
  4. FLONASE [Concomitant]
     Indication: SINUS DISORDER
     Dosage: DAILY
     Route: 045

REACTIONS (2)
  - FLUSHING [None]
  - PRURITUS [None]
